FAERS Safety Report 8551415 (Version 2)
Quarter: 2012Q4

REPORT INFORMATION
  Report Type: 
  Country: US (occurrence: US)
  Receive Date: 20120508
  Receipt Date: 20121220
  Transmission Date: 20130627
  Serious: Yes (Death, Hospitalization)
  Sender: FDA-Public Use
  Company Number: US-INCYTE CORPORATION-2012IN000709

PATIENT
  Age: 84 None
  Sex: Male

DRUGS (1)
  1. JAKAFI [Suspect]
     Indication: MYELOFIBROSIS
     Dosage: 10 mg, bid
     Route: 048
     Dates: start: 20120126, end: 20120505

REACTIONS (2)
  - Death [Fatal]
  - Hospitalisation [Unknown]
